FAERS Safety Report 8906383 (Version 1)
Quarter: 2012Q4

REPORT INFORMATION
  Report Type: Spontaneous
  Country: US (occurrence: None)
  Receive Date: 20121109
  Receipt Date: 20121109
  Transmission Date: 20130627
  Serious: Yes (Disabling)
  Sender: FDA-Public Use
  Company Number: None

PATIENT
  Sex: Female
  Weight: 58.97 kg

DRUGS (1)
  1. MIRENA IUD [Suspect]

REACTIONS (3)
  - Pelvic inflammatory disease [None]
  - Pain [None]
  - Libido disorder [None]
